FAERS Safety Report 16162758 (Version 1)
Quarter: 2019Q2

REPORT INFORMATION
  Report Type: Spontaneous
  Country: DE (occurrence: DE)
  Receive Date: 20190405
  Receipt Date: 20190405
  Transmission Date: 20190711
  Serious: Yes (Other)
  Sender: FDA-Public Use
  Company Number: DE-DRREDDYS-GER/GER/19/0109161

PATIENT
  Sex: Female

DRUGS (3)
  1. XYREM [Suspect]
     Active Substance: SODIUM OXYBATE
     Indication: PRODUCT USED FOR UNKNOWN INDICATION
     Dosage: DOSAGE FORM: UNSPECIFIED, 1.75 G, BID?START PERIOD: 7 (DAYS)
     Route: 048
     Dates: start: 20181203
  2. XYREM [Suspect]
     Active Substance: SODIUM OXYBATE
     Dosage: DOSAGE FORM: UNSPECIFIED, 1.5 GRAM BID?START PERIOD: 7 (DAYS)
     Route: 048
     Dates: start: 20181127
  3. CETIRIZINE HYDROCHLORIDE. [Suspect]
     Active Substance: CETIRIZINE HYDROCHLORIDE
     Indication: DERMATITIS EXFOLIATIVE GENERALISED
     Dosage: DOSAGE FORM: UNSPECIFIED
     Route: 065

REACTIONS (4)
  - Hypersensitivity [Unknown]
  - Dermatitis exfoliative generalised [Unknown]
  - Hyperpathia [Unknown]
  - Off label use [Unknown]

NARRATIVE: CASE EVENT DATE: 20181203
